FAERS Safety Report 21732338 (Version 1)
Quarter: 2022Q4

REPORT INFORMATION
  Report Type: Spontaneous
  Country: US (occurrence: US)
  Receive Date: 20221215
  Receipt Date: 20221215
  Transmission Date: 20230113
  Serious: No
  Sender: FDA-Public Use
  Company Number: US-NOVEN PHARMACEUTICALS, INC.-2022-NOV-US000069

PATIENT
  Age: 6 Year
  Sex: Male

DRUGS (5)
  1. DAYTRANA [Suspect]
     Active Substance: METHYLPHENIDATE
     Indication: Attention deficit hyperactivity disorder
     Dosage: 30 MG, UNKNOWN
     Route: 062
  2. DAYTRANA [Suspect]
     Active Substance: METHYLPHENIDATE
     Indication: Anger
  3. DAYTRANA [Suspect]
     Active Substance: METHYLPHENIDATE
     Indication: Autism spectrum disorder
  4. DAYTRANA [Suspect]
     Active Substance: METHYLPHENIDATE
     Indication: Oppositional defiant disorder
  5. DAYTRANA [Suspect]
     Active Substance: METHYLPHENIDATE
     Indication: Post-traumatic stress disorder

REACTIONS (9)
  - Application site pruritus [Not Recovered/Not Resolved]
  - Drug delivery system removal [Not Recovered/Not Resolved]
  - Product administration error [Not Recovered/Not Resolved]
  - Product administered at inappropriate site [Not Recovered/Not Resolved]
  - Product storage error [Recovered/Resolved]
  - Device difficult to use [Not Recovered/Not Resolved]
  - Device breakage [Not Recovered/Not Resolved]
  - Device adhesion issue [Not Recovered/Not Resolved]
  - Product adhesion issue [Not Recovered/Not Resolved]

NARRATIVE: CASE EVENT DATE: 20220101
